FAERS Safety Report 15084327 (Version 1)
Quarter: 2018Q2

REPORT INFORMATION
  Report Type: Spontaneous
  Country: US (occurrence: US)
  Receive Date: 20180628
  Receipt Date: 20180628
  Transmission Date: 20180711
  Serious: Yes (Hospitalization, Other)
  Sender: FDA-Public Use
  Company Number: US-PFIZER INC-2018261507

PATIENT
  Sex: Male

DRUGS (1)
  1. LYRICA [Suspect]
     Active Substance: PREGABALIN
     Indication: DIABETIC NEUROPATHY
     Dosage: UNK

REACTIONS (5)
  - Angioedema [Recovered/Resolved]
  - Swelling [Recovered/Resolved]
  - Blindness [Recovered/Resolved]
  - Pruritus [Recovered/Resolved]
  - Anaphylactic reaction [Recovered/Resolved]
